FAERS Safety Report 5387687-4 (Version None)
Quarter: 2007Q3

REPORT INFORMATION
  Report Type: 
  Country: None (occurrence: None)
  Receive Date: 20070716
  Receipt Date: 20070703
  Transmission Date: 20080115
  Serious: Yes (Life-Threatening)
  Sender: FDA-Public Use
  Company Number: JP-ASTRAZENECA-2007SE03914

PATIENT
  Age: 23327 Day
  Sex: Male
  Weight: 50 kg

DRUGS (10)
  1. BLOPRESS TABLETS 8 [Suspect]
     Indication: CARDIAC FAILURE
     Route: 048
     Dates: end: 20070602
  2. BLOPRESS TABLETS 8 [Suspect]
     Route: 048
     Dates: start: 20070605
  3. DILTIAZEM HCL [Suspect]
     Route: 048
     Dates: start: 20070515
  4. ARTIST [Concomitant]
     Route: 048
  5. ADALAT [Concomitant]
     Route: 048
  6. WARFARIN SODIUM [Concomitant]
     Route: 048
  7. NORMONAL [Concomitant]
     Route: 048
  8. CARDENALIN [Concomitant]
     Route: 048
  9. ALLOZYM [Concomitant]
     Route: 048
     Dates: start: 20070605
  10. JUVELA N [Concomitant]
     Route: 048

REACTIONS (2)
  - BRADYCARDIA [None]
  - CARDIAC ARREST [None]
